FAERS Safety Report 12632588 (Version 2)
Quarter: 2016Q3

REPORT INFORMATION
  Report Type: Spontaneous
  Country: US (occurrence: US)
  Receive Date: 20160808
  Receipt Date: 20160808
  Transmission Date: 20161109
  Serious: No
  Sender: FDA-Public Use
  Company Number: US-BEH-2015056126

PATIENT
  Age: 55 Year
  Sex: Male

DRUGS (26)
  1. AZITHROMYCIN ANHYDROUS. [Concomitant]
     Active Substance: AZITHROMYCIN ANHYDROUS
  2. PROTONIX [Concomitant]
     Active Substance: PANTOPRAZOLE SODIUM
  3. CLOTRIMAZOLE. [Concomitant]
     Active Substance: CLOTRIMAZOLE
  4. COLISTIN SULFATE [Concomitant]
     Active Substance: COLISTIN SULFATE
  5. LIDOCAINE. [Concomitant]
     Active Substance: LIDOCAINE
  6. PROGRAF [Concomitant]
     Active Substance: TACROLIMUS\TACROLIMUS ANHYDROUS
  7. PRAVACHOL [Concomitant]
     Active Substance: PRAVASTATIN SODIUM
  8. VITAMIN C [Concomitant]
     Active Substance: ASCORBIC ACID
  9. AMBISOME [Concomitant]
     Active Substance: AMPHOTERICIN B
  10. MUPIROCIN. [Concomitant]
     Active Substance: MUPIROCIN
  11. CALCIUM W-VIT D [Concomitant]
  12. PANCREASE MT [Concomitant]
     Active Substance: PANCRELIPASE
  13. LIDOCAINE. [Concomitant]
     Active Substance: LIDOCAINE
  14. HUMULIN N [Concomitant]
     Active Substance: INSULIN HUMAN
  15. MULTIVITAMIN [Concomitant]
     Active Substance: VITAMINS
  16. EPIPEN [Concomitant]
     Active Substance: EPINEPHRINE
  17. MUCINEX [Concomitant]
     Active Substance: GUAIFENESIN
  18. MUPIPROCIN [Concomitant]
  19. PREDNISONE. [Concomitant]
     Active Substance: PREDNISONE
  20. RITALIN [Concomitant]
     Active Substance: METHYLPHENIDATE HYDROCHLORIDE
  21. HIZENTRA [Suspect]
     Active Substance: HUMAN IMMUNOGLOBULIN G
     Indication: IMMUNODEFICIENCY COMMON VARIABLE
     Dosage: STRENGTH OF DOSAGE FORM: 2 GM 10ML VIALS
     Route: 058
  22. HUMULIN R [Concomitant]
     Active Substance: INSULIN HUMAN
  23. BACTRIM [Concomitant]
     Active Substance: SULFAMETHOXAZOLE\TRIMETHOPRIM
  24. ALBUTEROL. [Concomitant]
     Active Substance: ALBUTEROL
  25. DIPHENHYDRAMINE. [Concomitant]
     Active Substance: DIPHENHYDRAMINE
  26. SOLUTIONS FOR PARENTERAL NUTRITION [Concomitant]
     Active Substance: AMINO ACIDS\DEXTROSE\ELECTROLYTES NOS

REACTIONS (1)
  - Rhinovirus infection [Unknown]

NARRATIVE: CASE EVENT DATE: 20151027
